FAERS Safety Report 25983247 (Version 1)
Quarter: 2025Q4

REPORT INFORMATION
  Report Type: Spontaneous
  Country: EU (occurrence: EU)
  Receive Date: 20251031
  Receipt Date: 20251031
  Transmission Date: 20260117
  Serious: Yes (Life-Threatening)
  Sender: TEVA
  Company Number: None

PATIENT
  Age: 50 Year
  Sex: Male
  Weight: 117 kg

DRUGS (1)
  1. DIAZEPAM [Suspect]
     Active Substance: DIAZEPAM
     Indication: Withdrawal syndrome
     Dosage: 6 X PER DAY EVERY THREE HOURS: BRAND NAME NOT SPECIFIED
     Route: 048
     Dates: start: 20251009

REACTIONS (3)
  - Agitation [Unknown]
  - Drug ineffective [Unknown]
  - Product substitution issue [Unknown]
